FAERS Safety Report 23721343 (Version 1)
Quarter: 2024Q2

REPORT INFORMATION
  Report Type: Spontaneous
  Country: CN (occurrence: CN)
  Receive Date: 20240409
  Receipt Date: 20240409
  Transmission Date: 20240715
  Serious: Yes (Hospitalization)
  Sender: FDA-Public Use
  Company Number: CN-SHANGHAI JUNSHI BIOSCIENCES CO., LTD.-CN2024009620

PATIENT

DRUGS (6)
  1. TORIPALIMAB [Suspect]
     Active Substance: TORIPALIMAB
     Indication: Metastatic neoplasm
     Dosage: 240MG (D1)
     Route: 041
     Dates: start: 20240205, end: 20240205
  2. TORIPALIMAB [Suspect]
     Active Substance: TORIPALIMAB
     Indication: Bone cancer metastatic
  3. DOCETAXEL [Suspect]
     Active Substance: DOCETAXEL\DOCETAXEL ANHYDROUS
     Indication: Metastatic neoplasm
     Dosage: 90 MG (D1)
     Route: 041
     Dates: start: 20240205, end: 20240205
  4. DOCETAXEL [Suspect]
     Active Substance: DOCETAXEL\DOCETAXEL ANHYDROUS
     Indication: Bone cancer metastatic
  5. CISPLATIN [Suspect]
     Active Substance: CISPLATIN
     Indication: Metastatic neoplasm
     Dosage: 90 MG (D1)
     Route: 041
     Dates: start: 20240205, end: 20240205
  6. CISPLATIN [Suspect]
     Active Substance: CISPLATIN
     Indication: Bone cancer metastatic

REACTIONS (2)
  - Myelosuppression [Unknown]
  - Off label use [Unknown]

NARRATIVE: CASE EVENT DATE: 20240205
